FAERS Safety Report 7519671-6 (Version None)
Quarter: 2011Q2

REPORT INFORMATION
  Report Type: 
  Country: None (occurrence: None)
  Receive Date: 20110602
  Receipt Date: 20110526
  Transmission Date: 20111010
  Serious: Yes (Hospitalization)
  Sender: FDA-Public Use
  Company Number: Z0008579B

PATIENT
  Age: 60 Year
  Sex: Female
  Weight: 64.5 kg

DRUGS (7)
  1. FENTANYL [Concomitant]
     Indication: SEDATION
     Dosage: .83UGM CONTINUOUS
     Route: 042
     Dates: start: 20110313, end: 20110327
  2. HALOPERIDOL [Concomitant]
     Route: 030
     Dates: start: 20110322, end: 20110402
  3. FAMOTIDINE [Concomitant]
     Indication: PROPHYLAXIS
     Dosage: 20MG TWICE PER DAY
     Route: 048
     Dates: start: 20110315, end: 20110320
  4. PROPOFOL [Concomitant]
     Indication: SEDATION
     Dosage: .083UKM CONTINUOUS
     Route: 042
     Dates: start: 20110313, end: 20110330
  5. ZANAMIVIR [Suspect]
     Indication: INFLUENZA
     Dosage: 600MG TWICE PER DAY
     Route: 042
     Dates: start: 20110311
  6. MIDAZOLAM HCL [Concomitant]
     Route: 042
     Dates: start: 20110313, end: 20110328
  7. PREDNISONE [Concomitant]
     Route: 048
     Dates: start: 20110331, end: 20110411

REACTIONS (1)
  - ENCEPHALOPATHY [None]
